FAERS Safety Report 4435768-1 (Version None)
Quarter: 2004Q3

REPORT INFORMATION
  Report Type: 
  Country: None (occurrence: None)
  Receive Date: 20040826
  Receipt Date: 20040810
  Transmission Date: 20050211
  Serious: Yes (Hospitalization)
  Sender: FDA-Public Use
  Company Number: 2004-BP-06706RO

PATIENT
  Age: 51 Year
  Sex: Male

DRUGS (7)
  1. NEFAZODONE HCL [Suspect]
     Indication: DEPRESSION
     Dosage: 150 MG QAM; 300 MG QPM, PO; 150 MG QAM; 450 MG QPM, PO
     Route: 048
  2. CLONAZEPAM [Suspect]
     Indication: DEPRESSION
     Dosage: 3 MG (1 MG), PO
     Route: 048
  3. MIRTAZAPINE [Concomitant]
  4. QUETIAPINE (QUETIAPINE) [Concomitant]
  5. RANITIDINE [Concomitant]
  6. OMEPRAZOLE [Concomitant]
  7. ACETAMINOPHEN W/HYDROCODONE (PROCET/USA/) [Concomitant]

REACTIONS (14)
  - ASCITES [None]
  - ASTHENIA [None]
  - CHOLELITHIASIS [None]
  - CONDITION AGGRAVATED [None]
  - CONSTIPATION [None]
  - DEPRESSED MOOD [None]
  - DEPRESSIVE SYMPTOM [None]
  - DIARRHOEA [None]
  - ENCEPHALOPATHY [None]
  - FATIGUE [None]
  - HEPATIC FAILURE [None]
  - HEPATIC NECROSIS [None]
  - SUICIDAL IDEATION [None]
  - WEIGHT DECREASED [None]
